FAERS Safety Report 15800478 (Version 3)
Quarter: 2019Q1

REPORT INFORMATION
  Report Type: Spontaneous
  Country: US (occurrence: US)
  Receive Date: 20190108
  Receipt Date: 20190125
  Transmission Date: 20190417
  Serious: Yes (Death)
  Sender: FDA-Public Use
  Company Number: US-VIFOR (INTERNATIONAL) INC.-VIT-2019-00022

PATIENT
  Age: 80 Year
  Sex: Male
  Weight: 67.65 kg

DRUGS (19)
  1. BUMETANIDE. [Concomitant]
     Active Substance: BUMETANIDE
  2. FINASTERIDE. [Concomitant]
     Active Substance: FINASTERIDE
  3. PLAVIX [Concomitant]
     Active Substance: CLOPIDOGREL BISULFATE
  4. VALSARTAN. [Concomitant]
     Active Substance: VALSARTAN
  5. CARVEDILOL. [Concomitant]
     Active Substance: CARVEDILOL
  6. ATORVASTATIN CALCIUM. [Concomitant]
     Active Substance: ATORVASTATIN CALCIUM
  7. CALCIUM 600+D [Concomitant]
     Active Substance: CALCIUM\VITAMIN D
  8. NITROSTAT [Concomitant]
     Active Substance: NITROGLYCERIN
  9. SODIUM BICARBONATE. [Concomitant]
     Active Substance: SODIUM BICARBONATE
  10. FERROUS SULFATE. [Concomitant]
     Active Substance: FERROUS SULFATE
  11. NEPHRO VITE RX [Concomitant]
     Active Substance: ASCORBIC ACID\BIOTIN\CALCIUM PANTOTHENATE\CYANOCOBALAMIN\FOLIC ACID\NIACINAMIDE\PYRIDOXINE HYDROCHLORIDE\RIBOFLAVIN\THIAMINE MONONITRATE
  12. TRAZODONE HYDROCHLORIDE. [Concomitant]
     Active Substance: TRAZODONE HYDROCHLORIDE
  13. HUMALOG [Concomitant]
     Active Substance: INSULIN LISPRO
  14. LEVEMIR [Concomitant]
     Active Substance: INSULIN DETEMIR
  15. TAMSULOSIN HCL [Concomitant]
     Active Substance: TAMSULOSIN HYDROCHLORIDE
  16. VELTASSA [Suspect]
     Active Substance: PATIROMER
     Indication: HYPERKALAEMIA
     Route: 048
     Dates: start: 201805
  17. ASPIRIN. [Concomitant]
     Active Substance: ASPIRIN
  18. HYDROCODONE-ACETAMINOPHEN [Concomitant]
     Active Substance: ACETAMINOPHEN\HYDROCODONE
  19. LISINOPRIL. [Concomitant]
     Active Substance: LISINOPRIL

REACTIONS (1)
  - Myocardial infarction [Fatal]

NARRATIVE: CASE EVENT DATE: 20181220
